FAERS Safety Report 7553852-0 (Version None)
Quarter: 2011Q2

REPORT INFORMATION
  Report Type: 
  Country: None (occurrence: None)
  Receive Date: 20110617
  Receipt Date: 20110610
  Transmission Date: 20111010
  Serious: Yes (Hospitalization)
  Sender: FDA-Public Use
  Company Number: FR-BRISTOL-MYERS SQUIBB COMPANY-15832926

PATIENT
  Age: 66 Year
  Sex: Male

DRUGS (8)
  1. ATORVASTATIN CALCIUM [Concomitant]
  2. MIRTAZAPINE [Suspect]
  3. HYPERIUM [Concomitant]
  4. KARDEGIC [Concomitant]
  5. OMEPRAZOLE [Suspect]
     Route: 048
     Dates: end: 20110521
  6. NORDAZEPAM [Concomitant]
  7. IRBESARTAN AND HYDROCHLOROTHIAZIDE [Suspect]
     Route: 048
     Dates: end: 20110521
  8. GLUCOPHAGE [Concomitant]

REACTIONS (4)
  - RENAL FAILURE ACUTE [None]
  - CONFUSIONAL STATE [None]
  - HYPONATRAEMIA [None]
  - ROAD TRAFFIC ACCIDENT [None]
